FAERS Safety Report 24881158 (Version 1)
Quarter: 2025Q1

REPORT INFORMATION
  Report Type: Spontaneous
  Country: GB (occurrence: GB)
  Receive Date: 20250124
  Receipt Date: 20250124
  Transmission Date: 20250409
  Serious: Yes (Other)
  Sender: ALEXION PHARMACEUTICALS
  Company Number: GB-MHRA-TPP25858387C17566229YC1737396679132

PATIENT
  Age: 78 Year
  Weight: 86 kg

DRUGS (27)
  1. DAPAGLIFLOZIN [Suspect]
     Active Substance: DAPAGLIFLOZIN
     Indication: Ill-defined disorder
     Route: 065
  2. TRIMETHOPRIM [Concomitant]
     Active Substance: TRIMETHOPRIM
     Indication: Ill-defined disorder
     Route: 065
  3. CIPROFLOXACIN [Concomitant]
     Active Substance: CIPROFLOXACIN
     Indication: Ill-defined disorder
     Dosage: UNK, BID
     Route: 065
  4. DOXYCYCLINE [Concomitant]
     Active Substance: DOXYCYCLINE
     Indication: Ill-defined disorder
     Route: 065
  5. EASYHALER [Concomitant]
     Indication: Ill-defined disorder
     Route: 065
  6. LATANOPROST [Concomitant]
     Active Substance: LATANOPROST
     Indication: Ill-defined disorder
     Route: 065
  7. Lite [Concomitant]
     Indication: Ill-defined disorder
     Route: 065
  8. UNSPECIFIED INGREDIENT [Concomitant]
     Active Substance: UNSPECIFIED INGREDIENT
     Indication: Ill-defined disorder
     Route: 065
  9. INSULIN HUMAN [Concomitant]
     Active Substance: INSULIN HUMAN
     Indication: Ill-defined disorder
     Route: 065
  10. SITAGLIPTIN [Concomitant]
     Active Substance: SITAGLIPTIN
     Indication: Ill-defined disorder
     Route: 065
  11. METFORMIN HYDROCHLORIDE [Concomitant]
     Active Substance: METFORMIN HYDROCHLORIDE
     Indication: Ill-defined disorder
     Route: 065
  12. ASPIRIN [Concomitant]
     Active Substance: ASPIRIN
     Indication: Ill-defined disorder
     Route: 065
  13. CLOPIDOGREL [Concomitant]
     Active Substance: CLOPIDOGREL BISULFATE
     Indication: Ill-defined disorder
     Route: 065
  14. NITROGLYCERIN [Concomitant]
     Active Substance: NITROGLYCERIN
     Indication: Ill-defined disorder
     Route: 065
  15. PRAVASTATIN [Concomitant]
     Active Substance: PRAVASTATIN
     Indication: Ill-defined disorder
     Route: 065
  16. LANSOPRAZOLE [Concomitant]
     Active Substance: LANSOPRAZOLE
     Indication: Ill-defined disorder
     Route: 065
  17. BISOPROLOL [Concomitant]
     Active Substance: BISOPROLOL
     Indication: Ill-defined disorder
     Dosage: UNK, BID
     Route: 065
  18. ISOSORBIDE MONONITRATE [Concomitant]
     Active Substance: ISOSORBIDE MONONITRATE
     Indication: Ill-defined disorder
     Route: 065
  19. RAMIPRIL [Concomitant]
     Active Substance: RAMIPRIL
     Indication: Ill-defined disorder
     Dosage: UNK, QD
     Route: 065
  20. AMLODIPINE [Concomitant]
     Active Substance: AMLODIPINE BESYLATE
     Indication: Ill-defined disorder
     Dosage: UNK, QD
     Route: 065
  21. AMLODIPINE [Concomitant]
     Active Substance: AMLODIPINE BESYLATE
     Indication: Ill-defined disorder
  22. DAPAGLIFLOZIN [Concomitant]
     Active Substance: DAPAGLIFLOZIN
     Indication: Ill-defined disorder
     Dosage: UNK, QD
     Route: 065
  23. DAPAGLIFLOZIN [Concomitant]
     Active Substance: DAPAGLIFLOZIN
     Indication: Ill-defined disorder
  24. LINAGLIPTIN [Concomitant]
     Active Substance: LINAGLIPTIN
     Indication: Ill-defined disorder
     Dosage: UNK, QD
     Route: 065
  25. LINAGLIPTIN [Concomitant]
     Active Substance: LINAGLIPTIN
     Indication: Ill-defined disorder
  26. UNSPECIFIED INGREDIENT [Concomitant]
     Active Substance: UNSPECIFIED INGREDIENT
     Indication: Ill-defined disorder
     Route: 065
  27. Sukkarto sr [Concomitant]
     Indication: Ill-defined disorder
     Route: 065

REACTIONS (1)
  - Feeling abnormal [Recovered/Resolved]
